FAERS Safety Report 23364026 (Version 1)
Quarter: 2024Q1

REPORT INFORMATION
  Report Type: Spontaneous
  Country: AT (occurrence: AT)
  Receive Date: 20240104
  Receipt Date: 20240104
  Transmission Date: 20240410
  Serious: Yes (Death, Life-Threatening, Hospitalization, Other)
  Sender: FDA-Public Use
  Company Number: AT-BoehringerIngelheim-2024-BI-000069

PATIENT
  Age: 55 Year
  Sex: Male
  Weight: 145 kg

DRUGS (2)
  1. EMPAGLIFLOZIN [Suspect]
     Active Substance: EMPAGLIFLOZIN
     Indication: Type 2 diabetes mellitus
     Dates: start: 201608, end: 20230306
  2. SEMAGLUTIDE [Concomitant]
     Active Substance: SEMAGLUTIDE
     Indication: Type 2 diabetes mellitus
     Route: 048
     Dates: start: 20191116, end: 20230305

REACTIONS (6)
  - Dyspnoea [Fatal]
  - Staphylococcal bacteraemia [Fatal]
  - Septic shock [Fatal]
  - Intervertebral discitis [Fatal]
  - Behaviour disorder [Fatal]
  - Ketoacidosis [Recovered/Resolved]

NARRATIVE: CASE EVENT DATE: 20230306
